FAERS Safety Report 21939516 (Version 1)
Quarter: 2023Q1

REPORT INFORMATION
  Report Type: Report from Study
  Country: CA (occurrence: CA)
  Receive Date: 20230201
  Receipt Date: 20230201
  Transmission Date: 20230417
  Serious: No
  Sender: FDA-Public Use
  Company Number: CA-EXELIXIS-CABO-21047837

PATIENT
  Sex: Male

DRUGS (12)
  1. CABOMETYX [Suspect]
     Active Substance: CABOZANTINIB S-MALATE
     Indication: Hepatocellular carcinoma
     Dosage: 20 MG, QD
     Route: 048
     Dates: start: 20200411, end: 202009
  2. LORAZEPAM [Concomitant]
     Active Substance: LORAZEPAM
  3. ACETAMINOPHEN\OXYCODONE HYDROCHLORIDE [Concomitant]
     Active Substance: ACETAMINOPHEN\OXYCODONE HYDROCHLORIDE
  4. SYNTHROID [Concomitant]
     Active Substance: LEVOTHYROXINE SODIUM
  5. OMNARIS [Concomitant]
     Active Substance: CICLESONIDE
  6. ATENOLOL [Concomitant]
     Active Substance: ATENOLOL
  7. VITAMIN B [Concomitant]
     Active Substance: VITAMIN B
  8. SPIRONOLACTONE [Concomitant]
     Active Substance: SPIRONOLACTONE
  9. NORVASC [Concomitant]
     Active Substance: AMLODIPINE BESYLATE
  10. LINAGLIPTIN [Concomitant]
     Active Substance: LINAGLIPTIN
  11. METFORMIN [Concomitant]
     Active Substance: METFORMIN HYDROCHLORIDE
  12. RAMIPRIL [Concomitant]
     Active Substance: RAMIPRIL

REACTIONS (1)
  - Toxicity to various agents [Unknown]
